FAERS Safety Report 7012515-0 (Version None)
Quarter: 2010Q3

REPORT INFORMATION
  Report Type: 
  Country: None (occurrence: None)
  Receive Date: 20100924
  Receipt Date: 20100914
  Transmission Date: 20110219
  Serious: Yes (Hospitalization, Other)
  Sender: FDA-Public Use
  Company Number: FR-MILLENNIUM PHARMACEUTICALS, INC.-2010-04891

PATIENT

DRUGS (5)
  1. VELCADE [Suspect]
     Indication: MULTIPLE MYELOMA
     Dosage: 2 MG, UNK
     Dates: start: 20090401
  2. VELCADE [Suspect]
     Dosage: UNK
     Route: 042
     Dates: start: 20100722, end: 20100826
  3. DEXAMETHASONE [Concomitant]
  4. REVLIMID [Concomitant]
     Dosage: UNK
     Dates: start: 20070722
  5. METHYLPREDNISOLONE [Concomitant]
     Dosage: UNK

REACTIONS (7)
  - DECREASED APPETITE [None]
  - DEHYDRATION [None]
  - ECCHYMOSIS [None]
  - EPISTAXIS [None]
  - HAEMATOMA [None]
  - RASH [None]
  - THROMBOCYTOPENIA [None]
